FAERS Safety Report 6423773-5 (Version None)
Quarter: 2009Q4

REPORT INFORMATION
  Report Type: 
  Country: None (occurrence: None)
  Receive Date: 20091102
  Receipt Date: 20091023
  Transmission Date: 20100525
  Serious: Yes (Other)
  Sender: FDA-Public Use
  Company Number: CHPA2009US21047

PATIENT
  Sex: Female

DRUGS (4)
  1. VOLTAREN [Suspect]
     Indication: EXOSTOSIS
     Dosage: UNMEASURED AMOUNT 1-2 DAILY
     Route: 061
     Dates: end: 20091022
  2. XALATAN [Concomitant]
     Indication: GLAUCOMA
     Dosage: 0.5%, 1 GTT OS
     Route: 031
     Dates: start: 20010101
  3. ATENOLOL [Concomitant]
     Indication: HYPERTENSION
     Dosage: 5 MG, UNK
     Dates: start: 19970101
  4. SYNTHROID [Concomitant]
     Indication: HYPOTHYROIDISM
     Dosage: 100 UG, UNK

REACTIONS (4)
  - DRUG ADMINISTERED AT INAPPROPRIATE SITE [None]
  - INTRAOCULAR PRESSURE INCREASED [None]
  - OFF LABEL USE [None]
  - WRONG TECHNIQUE IN DRUG USAGE PROCESS [None]
